FAERS Safety Report 12095011 (Version 1)
Quarter: 2016Q1

REPORT INFORMATION
  Report Type: Spontaneous
  Country: SE (occurrence: SE)
  Receive Date: 20160219
  Receipt Date: 20160219
  Transmission Date: 20160526
  Serious: No
  Sender: FDA-Public Use
  Company Number: SE-PERNIX THERAPEUTICS-2015PT000291

PATIENT
  Sex: Male
  Weight: 10 kg

DRUGS (1)
  1. CEDAX [Suspect]
     Active Substance: CEFTIBUTEN DIHYDRATE
     Indication: URINARY TRACT INFECTION
     Dosage: 36 MG/ML POWDER FOR ORAL SUSPENSION
     Route: 048

REACTIONS (4)
  - Nausea [Unknown]
  - Cold sweat [Unknown]
  - Dermatitis diaper [Unknown]
  - Vomiting [Unknown]
